FAERS Safety Report 14147835 (Version 4)
Quarter: 2018Q1

REPORT INFORMATION
  Report Type: Report from Study
  Country: US (occurrence: US)
  Receive Date: 20171031
  Receipt Date: 20180207
  Transmission Date: 20180508
  Serious: No
  Sender: FDA-Public Use
  Company Number: PHEH2017US035174

PATIENT
  Sex: Female

DRUGS (3)
  1. COSENTYX [Suspect]
     Active Substance: SECUKINUMAB
     Dosage: UNK
     Route: 065
  2. COSENTYX [Suspect]
     Active Substance: SECUKINUMAB
     Indication: PRODUCT USED FOR UNKNOWN INDICATION
     Dosage: 300 MG, QMO
     Route: 058
  3. COSENTYX [Suspect]
     Active Substance: SECUKINUMAB
     Dosage: UNK
     Route: 065

REACTIONS (10)
  - Skin disorder [Unknown]
  - Influenza [Unknown]
  - Injection site pain [Unknown]
  - Sinusitis [Unknown]
  - Condition aggravated [Unknown]
  - Respiratory disorder [Unknown]
  - Fatigue [Unknown]
  - Skin exfoliation [Unknown]
  - Pruritus [Unknown]
  - Pain [Unknown]
